FAERS Safety Report 5810845-9 (Version None)
Quarter: 2008Q3

REPORT INFORMATION
  Report Type: 
  Country: None (occurrence: None)
  Receive Date: 20080715
  Receipt Date: 20080709
  Transmission Date: 20090109
  Serious: Yes (Hospitalization, Disabling, Other)
  Sender: FDA-Public Use
  Company Number: US-ALLERGAN-0808500US

PATIENT
  Sex: Female

DRUGS (2)
  1. BOTOX [Suspect]
     Indication: HEADACHE
     Dosage: UNK, SINGLE
     Dates: start: 20080101, end: 20080101
  2. BOTOX [Suspect]
     Indication: NERVE COMPRESSION

REACTIONS (7)
  - APHASIA [None]
  - DYSPHAGIA [None]
  - DYSPHONIA [None]
  - LETHARGY [None]
  - MUSCULAR WEAKNESS [None]
  - RENAL FAILURE ACUTE [None]
  - VOMITING [None]
